FAERS Safety Report 6156374-7 (Version None)
Quarter: 2009Q2

REPORT INFORMATION
  Report Type: 
  Country: None (occurrence: None)
  Receive Date: 20090416
  Receipt Date: 20070827
  Transmission Date: 20091009
  Serious: Yes (Hospitalization, Disabling, Other)
  Sender: FDA-Public Use
  Company Number: US-ASTRAZENECA-2006UW20972

PATIENT
  Age: 20007 Day
  Sex: Male
  Weight: 122.5 kg

DRUGS (17)
  1. SEROQUEL [Suspect]
     Dosage: 100 - 400 MG
     Route: 048
     Dates: start: 20030820
  2. VISATRIL [Concomitant]
  3. LANTUS [Concomitant]
  4. GLUCOVANCE [Concomitant]
  5. KLONOPIN [Concomitant]
  6. LOPID [Concomitant]
  7. LISINOPRIL [Concomitant]
  8. LYRICA [Concomitant]
  9. LORTAB [Concomitant]
  10. ASPIRIN [Concomitant]
  11. DUONEB [Concomitant]
  12. ALBUTEROL [Concomitant]
  13. GLUCOPHAGE [Concomitant]
  14. AMITRIPTYLINE HCL [Concomitant]
  15. RESPINOL [Concomitant]
  16. TRICOR [Concomitant]
  17. GLIPIZIDE [Concomitant]

REACTIONS (26)
  - ANTISOCIAL PERSONALITY DISORDER [None]
  - ANXIETY [None]
  - BACK PAIN [None]
  - BENIGN PROSTATIC HYPERPLASIA [None]
  - BILIARY DYSKINESIA [None]
  - CHEST PAIN [None]
  - CHOLECYSTITIS CHRONIC [None]
  - CHOLELITHIASIS [None]
  - CONSTIPATION [None]
  - CORONARY ARTERY DISEASE [None]
  - DYSPEPSIA [None]
  - DYSPHAGIA [None]
  - ERECTILE DYSFUNCTION [None]
  - GALLBLADDER POLYP [None]
  - GASTRITIS [None]
  - GASTROOESOPHAGEAL REFLUX DISEASE [None]
  - HYPERCHOLESTEROLAEMIA [None]
  - HYPERLIPIDAEMIA [None]
  - HYPERTRIGLYCERIDAEMIA [None]
  - ILL-DEFINED DISORDER [None]
  - INSOMNIA [None]
  - MAJOR DEPRESSION [None]
  - OBESITY [None]
  - OCCIPITAL NEURALGIA [None]
  - OESOPHAGITIS [None]
  - PROSTATISM [None]
